FAERS Safety Report 7898473-5 (Version None)
Quarter: 2011Q4

REPORT INFORMATION
  Report Type: 
  Country: None (occurrence: None)
  Receive Date: 20111107
  Receipt Date: 20111027
  Transmission Date: 20120403
  Serious: Yes (Other)
  Sender: FDA-Public Use
  Company Number: GB-ASTRAZENECA-2011SE46601

PATIENT
  Age: 58 Year
  Sex: Male
  Weight: 92.5 kg

DRUGS (4)
  1. ESOMEPRAZOLE MAGNESIUM [Suspect]
     Indication: DYSPEPSIA
     Route: 048
     Dates: start: 20020806
  2. ATENOLOL [Concomitant]
     Indication: HYPERTENSION
     Route: 048
     Dates: start: 20030513
  3. SIMVASTATIN [Concomitant]
     Route: 048
     Dates: start: 20061204
  4. LERCANIDIPINE [Concomitant]
     Indication: HYPERTENSION
     Route: 048
     Dates: start: 20071120

REACTIONS (2)
  - LACTOSE INTOLERANCE [None]
  - DIARRHOEA [None]
